FAERS Safety Report 7730704-4 (Version None)
Quarter: 2011Q3

REPORT INFORMATION
  Report Type: 
  Country: None (occurrence: None)
  Receive Date: 20110906
  Receipt Date: 20110829
  Transmission Date: 20111222
  Serious: Yes (Other)
  Sender: FDA-Public Use
  Company Number: US-GLAXOSMITHKLINE-A0942713A

PATIENT
  Age: 46 Year
  Sex: Male

DRUGS (2)
  1. NO CONCURRENT MEDICATION [Concomitant]
  2. LAMICTAL XR [Suspect]
     Indication: CONVULSION
     Dosage: 100MG TWICE PER DAY
     Route: 048
     Dates: start: 20100101

REACTIONS (5)
  - CONVULSION [None]
  - TREMOR [None]
  - MYOCLONUS [None]
  - INCORRECT STORAGE OF DRUG [None]
  - INAPPROPRIATE SCHEDULE OF DRUG ADMINISTRATION [None]
